FAERS Safety Report 6644668-8 (Version None)
Quarter: 2010Q1

REPORT INFORMATION
  Report Type: 
  Country: None (occurrence: None)
  Receive Date: 20100322
  Receipt Date: 20100313
  Transmission Date: 20100710
  Serious: Yes (Hospitalization)
  Sender: FDA-Public Use
  Company Number: US-SANOFI-AVENTIS-2010SA015693

PATIENT
  Age: 19 Year
  Sex: Female

DRUGS (1)
  1. LANTUS [Suspect]
     Indication: CYSTIC FIBROSIS RELATED DIABETES
     Dosage: DOSE:27 UNIT(S)
     Route: 058

REACTIONS (3)
  - CONDITION AGGRAVATED [None]
  - FEELING ABNORMAL [None]
  - LUNG DISORDER [None]
